FAERS Safety Report 9597541 (Version 1)
Quarter: 2013Q4

REPORT INFORMATION
  Report Type: Spontaneous
  Country: US (occurrence: US)
  Receive Date: 20131004
  Receipt Date: 20131004
  Transmission Date: 20140711
  Serious: No
  Sender: FDA-Public Use
  Company Number: US-AMGEN-USASP2013019682

PATIENT
  Age: 28 Year
  Sex: Male
  Weight: 78.46 kg

DRUGS (2)
  1. ENBREL [Suspect]
     Indication: PSORIASIS
     Dosage: 50 MG, 2 TIMES/WK
     Route: 058
  2. ALBUTEROL                          /00139501/ [Concomitant]
     Dosage: 90 MCG RF

REACTIONS (1)
  - Therapeutic response decreased [Unknown]
